FAERS Safety Report 7631465-X (Version None)
Quarter: 2011Q3

REPORT INFORMATION
  Report Type: 
  Country: None (occurrence: None)
  Receive Date: 20110725
  Receipt Date: 20110715
  Transmission Date: 20111222
  Serious: Yes (Hospitalization)
  Sender: FDA-Public Use
  Company Number: PHHY2011CN64446

PATIENT
  Age: 41 Year
  Sex: Female

DRUGS (5)
  1. DEXAMETHASONE [Suspect]
     Indication: LEUKAEMIC INFILTRATION BRAIN
     Dosage: 5 MG, UNK
     Route: 037
  2. METHOTREXATE [Suspect]
     Indication: LEUKAEMIC INFILTRATION BRAIN
     Dosage: 15 MG, UNK
     Route: 037
  3. LIDOCAINE [Concomitant]
     Dosage: 1.5 ML, UNK
  4. CYTARABINE [Suspect]
     Indication: LEUKAEMIC INFILTRATION BRAIN
     Dosage: 50 MG, UNK
     Route: 037
  5. SODIUM CHLORIDE [Concomitant]
     Dosage: 2 ML, UNK

REACTIONS (6)
  - DYSPNOEA [None]
  - PRURITUS [None]
  - AGITATION [None]
  - MYELOPATHY [None]
  - PARAPLEGIA [None]
  - PARAESTHESIA [None]
